FAERS Safety Report 10535183 (Version 2)
Quarter: 2014Q4

REPORT INFORMATION
  Report Type: Spontaneous
  Country: US (occurrence: US)
  Receive Date: 20141022
  Receipt Date: 20141024
  Transmission Date: 20150529
  Serious: No
  Sender: FDA-Public Use
  Company Number: US-ASTRAZENECA-2014SE05951

PATIENT
  Age: 97 Year
  Sex: Female

DRUGS (2)
  1. PROPANOLOL ER [Concomitant]
     Dosage: 60 MG HALF A TAB UNK
  2. CRESTOR [Suspect]
     Active Substance: ROSUVASTATIN CALCIUM
     Route: 048

REACTIONS (3)
  - Intentional product misuse [Unknown]
  - Localised oedema [Unknown]
  - Neck pain [Unknown]

NARRATIVE: CASE EVENT DATE: 201304
